FAERS Safety Report 11515110 (Version 9)
Quarter: 2016Q3

REPORT INFORMATION
  Report Type: Spontaneous
  Country: JP (occurrence: JP)
  Receive Date: 20150916
  Receipt Date: 20160909
  Transmission Date: 20161109
  Serious: Yes (Death, Hospitalization, Other)
  Sender: FDA-Public Use
  Company Number: JP-GILEAD-2015-0170898

PATIENT
  Age: 67 Year
  Sex: Female
  Weight: 156 kg

DRUGS (11)
  1. MUCOSAL                            /00082801/ [Concomitant]
     Indication: ASTHMA
     Dosage: 45 MG, QD
     Route: 048
     Dates: start: 20150523, end: 20150902
  2. URSO [Concomitant]
     Active Substance: URSODIOL
     Indication: HEPATITIS C
     Dosage: 600 MG, QD
     Route: 048
     Dates: start: 2009, end: 20150902
  3. SINGULAIR [Concomitant]
     Active Substance: MONTELUKAST SODIUM
     Indication: ASTHMA
     Dosage: 10 MG, QD
     Route: 048
     Dates: start: 20150528, end: 20150902
  4. WARFARIN                           /00014802/ [Concomitant]
     Active Substance: WARFARIN
     Indication: ATRIAL FIBRILLATION
     Dosage: 2 MG, QD
     Route: 048
     Dates: start: 2009, end: 20150902
  5. REBETOL [Suspect]
     Active Substance: RIBAVIRIN
     Indication: HEPATIC CIRRHOSIS
     Dosage: 200 MG AM, 400 MG PM
     Route: 048
     Dates: start: 20150818, end: 20150902
  6. HALFDIGOXIN [Suspect]
     Active Substance: DIGOXIN
     Indication: ATRIAL FIBRILLATION
     Dosage: 0.125 MG, QD
     Route: 048
     Dates: start: 20140728, end: 20150902
  7. NEXIUM [Concomitant]
     Active Substance: ESOMEPRAZOLE MAGNESIUM
     Indication: GASTROOESOPHAGEAL REFLUX DISEASE
     Dosage: 20 MG, QD
     Route: 048
     Dates: start: 20150303, end: 20150902
  8. DIART [Concomitant]
     Active Substance: AZOSEMIDE
     Indication: RIGHT VENTRICULAR FAILURE
     Dosage: 45 MG, QD
     Route: 048
     Dates: start: 20150609, end: 20150902
  9. MAINTATE [Concomitant]
     Active Substance: BISOPROLOL FUMARATE
     Indication: ATRIAL FIBRILLATION
     Dosage: 1.250 MG, QD
     Route: 048
     Dates: start: 2009, end: 20150902
  10. SOVALDI [Suspect]
     Active Substance: SOFOSBUVIR
     Indication: HEPATIC CIRRHOSIS
     Dosage: 400 MG, QD
     Route: 048
     Dates: start: 20150818, end: 20150902
  11. AMBROXOL [Concomitant]
     Active Substance: AMBROXOL
     Dosage: 45 MG, QD
     Route: 065
     Dates: end: 20150902

REACTIONS (11)
  - Hyperbilirubinaemia [Recovered/Resolved]
  - Inflammation [Recovering/Resolving]
  - Arthralgia [Recovering/Resolving]
  - Diarrhoea [Recovering/Resolving]
  - Torsade de pointes [Fatal]
  - Meniscus injury [Unknown]
  - Ventricular fibrillation [Fatal]
  - Malaise [Unknown]
  - Hypokalaemia [Not Recovered/Not Resolved]
  - Urinary tract infection [Recovering/Resolving]
  - Pyrexia [Recovering/Resolving]

NARRATIVE: CASE EVENT DATE: 20150826
